FAERS Safety Report 24864445 (Version 1)
Quarter: 2025Q1

REPORT INFORMATION
  Report Type: Report from Study
  Country: US (occurrence: US)
  Receive Date: 20250120
  Receipt Date: 20250120
  Transmission Date: 20250408
  Serious: Yes (Life-Threatening, Other)
  Sender: JOHNSON AND JOHNSON
  Company Number: US-JNJFOC-20231237026

PATIENT

DRUGS (5)
  1. IMBRUVICA [Suspect]
     Active Substance: IBRUTINIB
     Indication: Diffuse large B-cell lymphoma
     Route: 048
  2. VENETOCLAX [Suspect]
     Active Substance: VENETOCLAX
     Indication: Diffuse large B-cell lymphoma
     Route: 048
  3. PREDNISONE [Suspect]
     Active Substance: PREDNISONE
     Indication: Diffuse large B-cell lymphoma
     Route: 048
  4. OBINUTUZUMAB [Suspect]
     Active Substance: OBINUTUZUMAB
     Indication: Diffuse large B-cell lymphoma
     Route: 042
  5. LENALIDOMIDE [Suspect]
     Active Substance: LENALIDOMIDE
     Indication: Diffuse large B-cell lymphoma
     Route: 048

REACTIONS (21)
  - Thrombocytopenia [Unknown]
  - Neutropenia [Unknown]
  - Hypokalaemia [Unknown]
  - Tumour lysis syndrome [Recovered/Resolved]
  - Alanine aminotransferase increased [Unknown]
  - Anaemia [Unknown]
  - Febrile neutropenia [Unknown]
  - Haemorrhage intracranial [Unknown]
  - Atrial fibrillation [Unknown]
  - Diarrhoea [Unknown]
  - Fatigue [Unknown]
  - Vomiting [Unknown]
  - Pyrexia [Unknown]
  - Nausea [Unknown]
  - Rash [Unknown]
  - Off label use [Unknown]
  - Hypophosphataemia [Unknown]
  - Hypomagnesaemia [Unknown]
  - Constipation [Unknown]
  - Hypocalcaemia [Unknown]
  - Blood creatinine increased [Unknown]
